FAERS Safety Report 4962845-9 (Version None)
Quarter: 2006Q1

REPORT INFORMATION
  Report Type: 
  Country: None (occurrence: None)
  Receive Date: 20060331
  Receipt Date: 20060321
  Transmission Date: 20060701
  Serious: Yes (Hospitalization)
  Sender: FDA-Public Use
  Company Number: NLWYE497522MAR06

PATIENT
  Age: 54 Year
  Sex: Female

DRUGS (2)
  1. RAPAMUNE [Suspect]
     Indication: NEOPLASM PROPHYLAXIS
     Dosage: 3 MG 1X PER 1 DAY ORAL
     Route: 048
     Dates: start: 20060202, end: 20060224
  2. RAPAMUNE [Suspect]
     Indication: PROPHYLAXIS AGAINST TRANSPLANT REJECTION
     Dosage: 3 MG 1X PER 1 DAY ORAL
     Route: 048
     Dates: start: 20060202, end: 20060224

REACTIONS (2)
  - LEUKOPENIA [None]
  - PNEUMONIA [None]
